FAERS Safety Report 8216796-7 (Version None)
Quarter: 2012Q1

REPORT INFORMATION
  Report Type: 
  Country: None (occurrence: None)
  Receive Date: 20120316
  Receipt Date: 20120313
  Transmission Date: 20120608
  Serious: Yes (Hospitalization)
  Sender: FDA-Public Use
  Company Number: US-MERCK-1201USA03453

PATIENT
  Age: 72 Year
  Sex: Female

DRUGS (2)
  1. FOSAMAX [Suspect]
     Indication: OSTEOPOROSIS
     Route: 048
     Dates: start: 20080101, end: 20110101
  2. CLARITIN [Concomitant]
     Route: 048

REACTIONS (4)
  - MUSCULOSKELETAL DISORDER [None]
  - FEMUR FRACTURE [None]
  - ADVERSE EVENT [None]
  - FALL [None]
